FAERS Safety Report 9604876 (Version 1)
Quarter: 2013Q4

REPORT INFORMATION
  Report Type: Report from Study
  Country: JP (occurrence: JP)
  Receive Date: 20131008
  Receipt Date: 20131008
  Transmission Date: 20140711
  Serious: Yes (Hospitalization, Other)
  Sender: FDA-Public Use
  Company Number: JP-ASTELLAS-2013US010409

PATIENT
  Age: 58 Year
  Sex: Female

DRUGS (45)
  1. ERLOTINIB TABLET [Suspect]
     Indication: ADENOCARCINOMA PANCREAS
     Dosage: 100 MG, UID/QD
     Route: 048
     Dates: start: 20120214, end: 20120419
  2. ERLOTINIB TABLET [Suspect]
     Dosage: 100 MG, UID/QD
     Route: 048
     Dates: start: 20120510, end: 20120815
  3. GEMCITABINE HYDROCHLORIDE [Suspect]
     Indication: ADENOCARCINOMA PANCREAS
     Dosage: 1000 MG/M2, UID/QD
     Route: 041
     Dates: start: 20120214, end: 20120214
  4. GEMCITABINE HYDROCHLORIDE [Suspect]
     Dosage: 1000 MG/M2, UID/QD
     Route: 041
     Dates: start: 20120221, end: 20120221
  5. GEMCITABINE HYDROCHLORIDE [Suspect]
     Dosage: 1000 MG/M2, UID/QD
     Route: 041
     Dates: start: 20120301, end: 20120301
  6. GEMCITABINE HYDROCHLORIDE [Suspect]
     Dosage: 1000 MG/M2, UID/QD
     Route: 041
     Dates: start: 20120315, end: 20120315
  7. GEMCITABINE HYDROCHLORIDE [Suspect]
     Dosage: 1000 MG/M2, UID/QD
     Route: 041
     Dates: start: 20120322, end: 20120322
  8. GEMCITABINE HYDROCHLORIDE [Suspect]
     Dosage: 1000 MG/M2, UID/QD
     Route: 041
     Dates: start: 20120329, end: 20120329
  9. GEMCITABINE HYDROCHLORIDE [Suspect]
     Dosage: 1000 MG/M2, UID/QD
     Route: 041
     Dates: start: 20120412, end: 20120412
  10. GEMCITABINE HYDROCHLORIDE [Suspect]
     Dosage: 1000 MG/M2, UID/QD
     Route: 041
     Dates: start: 20120510, end: 20120510
  11. GEMCITABINE HYDROCHLORIDE [Suspect]
     Dosage: 1000 MG/M2, UID/QD
     Route: 041
     Dates: start: 20120517, end: 20120517
  12. GEMCITABINE HYDROCHLORIDE [Suspect]
     Dosage: 1000 MG/M2, UID/QD
     Route: 041
     Dates: start: 20120524, end: 20120524
  13. GEMCITABINE HYDROCHLORIDE [Suspect]
     Dosage: 1000 MG/M2, UID/QD
     Route: 041
     Dates: start: 20120607, end: 20120607
  14. GEMCITABINE HYDROCHLORIDE [Suspect]
     Dosage: 1000 MG/M2, UID/QD
     Route: 041
     Dates: start: 20120614, end: 20120614
  15. GEMCITABINE HYDROCHLORIDE [Suspect]
     Dosage: 1000 MG/M2, UID/QD
     Route: 041
     Dates: start: 20120621, end: 20120621
  16. GEMCITABINE HYDROCHLORIDE [Suspect]
     Dosage: 1000 MG/M2, UID/QD
     Route: 041
     Dates: start: 20120705, end: 20120705
  17. GEMCITABINE HYDROCHLORIDE [Suspect]
     Dosage: 1000 MG/M2, UID/QD
     Route: 041
     Dates: start: 20120712, end: 20120712
  18. GEMCITABINE HYDROCHLORIDE [Suspect]
     Dosage: 1000 MG/M2, UID/QD
     Route: 041
     Dates: start: 20120719, end: 20120719
  19. GEMCITABINE HYDROCHLORIDE [Suspect]
     Dosage: 1000 MG/M2, UID/QD
     Route: 041
     Dates: start: 20120802, end: 20120802
  20. GEMCITABINE HYDROCHLORIDE [Suspect]
     Dosage: 1000 MG/M2, UID/QD
     Route: 041
     Dates: start: 20120809, end: 20120809
  21. GEMCITABINE HYDROCHLORIDE [Suspect]
     Dosage: 1000 MG/M2, UID/QD
     Route: 041
     Dates: start: 20120816, end: 20120816
  22. OXYCODONE HYDROCHLORIDE [Suspect]
     Indication: ADENOCARCINOMA PANCREAS
     Dosage: 10 MG, UID/QD
     Route: 048
     Dates: end: 20120219
  23. OXYCODONE HYDROCHLORIDE [Suspect]
     Dosage: 20 MG, UID/QD
     Route: 048
     Dates: start: 20120220, end: 20120509
  24. OXYCODONE HYDROCHLORIDE [Suspect]
     Dosage: 30 MG, UID/QD
     Route: 048
     Dates: start: 20120510, end: 20120606
  25. OXYCODONE HYDROCHLORIDE [Suspect]
     Dosage: 40 MG, UID/QD
     Route: 048
     Dates: start: 20120607, end: 20120704
  26. OXYCODONE HYDROCHLORIDE [Suspect]
     Dosage: 60 MG, UID/QD
     Route: 048
     Dates: start: 20120705, end: 20120801
  27. OXYCODONE HYDROCHLORIDE [Suspect]
     Dosage: 80 MG, UID/QD
     Route: 048
     Dates: start: 20120802, end: 20120808
  28. OXYCODONE HYDROCHLORIDE [Suspect]
     Dosage: 120 MG, UID/QD
     Route: 048
     Dates: start: 20120809
  29. LOXOPROFEN                         /00890702/ [Concomitant]
     Indication: PRODUCT USED FOR UNKNOWN INDICATION
     Dosage: 180 MG, UID/QD
     Route: 048
     Dates: start: 20120215
  30. PARIET [Concomitant]
     Indication: PRODUCT USED FOR UNKNOWN INDICATION
     Dosage: 10 MG, UID/QD
     Route: 048
     Dates: start: 20120215
  31. OXINORM                            /00045603/ [Concomitant]
     Indication: ADENOCARCINOMA PANCREAS
     Dosage: 2.5 MG, PRN
     Route: 048
     Dates: end: 201202
  32. OXINORM                            /00045603/ [Concomitant]
     Dosage: 5 MG, PRN
     Route: 048
     Dates: start: 20120223, end: 20120523
  33. OXINORM                            /00045603/ [Concomitant]
     Dosage: 10-40 MG, PRN
     Route: 048
     Dates: start: 20120524, end: 20120801
  34. OXINORM                            /00045603/ [Concomitant]
     Dosage: 40 MG, PRN
     Route: 048
     Dates: start: 20120802
  35. PANTOSIN [Concomitant]
     Indication: PROPHYLAXIS
     Dosage: 300 MG, UID/QD
     Route: 048
     Dates: start: 20120214, end: 20120301
  36. PANTOSIN [Concomitant]
     Dosage: 100 MG, UNKNOWN/D
     Route: 048
     Dates: start: 20120302, end: 20120718
  37. PANTOSIN [Concomitant]
     Dosage: 300 MG, UID/QD
     Route: 048
     Dates: start: 20120719
  38. MAGMITT [Concomitant]
     Indication: PROPHYLAXIS
     Dosage: 900 MG, UID/QD
     Route: 048
     Dates: start: 20120214, end: 20120301
  39. MAGMITT [Concomitant]
     Dosage: 330 MG, UNKNOWN/D
     Route: 048
     Dates: start: 20120302, end: 20120718
  40. MAGMITT [Concomitant]
     Dosage: 990 MG, UID/QD
     Route: 048
     Dates: start: 20120719
  41. NOVAMIN                            /00013301/ [Concomitant]
     Indication: PRODUCT USED FOR UNKNOWN INDICATION
     Dosage: 15 MG, UID/QD
     Route: 048
     Dates: start: 20120214, end: 20120220
  42. MOBIC [Concomitant]
     Indication: ADENOCARCINOMA PANCREAS
     Dosage: 10 MG, UID/QD
     Route: 048
     Dates: start: 20120214
  43. GRANISETRON                        /01178102/ [Concomitant]
     Indication: PROPHYLAXIS
     Dosage: 1 MG, UID/QD
     Route: 041
     Dates: end: 20120816
  44. DEXART [Concomitant]
     Indication: PROPHYLAXIS
     Dosage: 6.6 MG, UID/QD
     Route: 041
     Dates: end: 20120816
  45. CYMBALTA [Concomitant]
     Indication: ADENOCARCINOMA PANCREAS
     Dosage: 20 MG, UID/QD
     Route: 048
     Dates: start: 20120719, end: 20120801

REACTIONS (24)
  - Hypoalbuminaemia [Recovered/Resolved]
  - Blood urea increased [Recovered/Resolved]
  - White blood cell count decreased [Recovered/Resolved]
  - Neutrophil count decreased [Recovered/Resolved]
  - Aspartate aminotransferase increased [Recovered/Resolved]
  - Alanine aminotransferase increased [Recovered/Resolved]
  - Alopecia [Recovered/Resolved]
  - Constipation [Recovering/Resolving]
  - Rash [Recovered/Resolved]
  - Decreased appetite [Recovered/Resolved]
  - Fatigue [Recovered/Resolved]
  - Stomatitis [Recovered/Resolved]
  - Paronychia [Recovering/Resolving]
  - Decreased appetite [Recovering/Resolving]
  - Nausea [Recovering/Resolving]
  - Interstitial lung disease [Recovering/Resolving]
  - Pulmonary embolism [Recovering/Resolving]
  - White blood cell count decreased [Recovered/Resolved]
  - Anaemia [Recovered/Resolved]
  - Platelet count decreased [Recovered/Resolved]
  - Oedema peripheral [Recovering/Resolving]
  - Deep vein thrombosis [Recovering/Resolving]
  - Pyrexia [Recovered/Resolved]
  - Pyrexia [Not Recovered/Not Resolved]
